FAERS Safety Report 5170646-4 (Version None)
Quarter: 2006Q4

REPORT INFORMATION
  Report Type: 
  Country: None (occurrence: None)
  Receive Date: 20061201
  Receipt Date: 20061117
  Transmission Date: 20070319
  Serious: Yes (Other)
  Sender: FDA-Public Use
  Company Number: 2006US002652

PATIENT
  Age: 37 Year
  Sex: Female

DRUGS (1)
  1. AMBISOME [Suspect]
     Indication: CANDIDIASIS
     Dosage: 200 MG , UID/QD, IV NOS
     Route: 042

REACTIONS (7)
  - CARDIAC VENTRICULAR DISORDER [None]
  - CARDIOMYOPATHY [None]
  - DILATATION VENTRICULAR [None]
  - DRUG TOXICITY [None]
  - EJECTION FRACTION DECREASED [None]
  - GENERAL PHYSICAL HEALTH DETERIORATION [None]
  - HYPOTENSION [None]
